FAERS Safety Report 17956397 (Version 1)
Quarter: 2020Q2

REPORT INFORMATION
  Report Type: Spontaneous
  Country: US (occurrence: US)
  Receive Date: 20200629
  Receipt Date: 20200629
  Transmission Date: 20200714
  Serious: No
  Sender: FDA-Public Use
  Company Number: US-009507513-2006USA008780

PATIENT
  Age: 51 Year
  Sex: Female

DRUGS (9)
  1. LEXAPRO [Concomitant]
     Active Substance: ESCITALOPRAM OXALATE
  2. THYROID [Concomitant]
     Active Substance: LEVOTHYROXINE\LIOTHYRONINE
     Dosage: 200 UNK
  3. REMICADE [Concomitant]
     Active Substance: INFLIXIMAB
     Indication: COLITIS
  4. KEYTRUDA [Suspect]
     Active Substance: PEMBROLIZUMAB
     Indication: METASTASES TO CENTRAL NERVOUS SYSTEM
  5. ESTROGEN NOS [Concomitant]
     Active Substance: ESTROGENS
  6. KEPPRA [Concomitant]
     Active Substance: LEVETIRACETAM
     Indication: SEIZURE
  7. METFORMIN [Concomitant]
     Active Substance: METFORMIN HYDROCHLORIDE
  8. KEYTRUDA [Suspect]
     Active Substance: PEMBROLIZUMAB
     Indication: MALIGNANT MELANOMA STAGE IV
     Dosage: 200 MILLIGRAM, EVERY 3 WEEKS
     Route: 042
     Dates: start: 2019
  9. VITAMIN D (UNSPECIFIED) [Concomitant]
     Active Substance: VITAMIN D NOS

REACTIONS (5)
  - Vulvovaginal mycotic infection [Not Recovered/Not Resolved]
  - Nasopharyngitis [Unknown]
  - Malaise [Unknown]
  - Insomnia [Unknown]
  - Vaginal infection [Not Recovered/Not Resolved]

NARRATIVE: CASE EVENT DATE: 2019
